FAERS Safety Report 6804322-6 (Version None)
Quarter: 2010Q2

REPORT INFORMATION
  Report Type: 
  Country: None (occurrence: None)
  Receive Date: 20100628
  Receipt Date: 20070307
  Transmission Date: 20101027
  Serious: No
  Sender: FDA-Public Use
  Company Number: US-PFIZER INC-2007017853

PATIENT
  Age: 50 Year
  Sex: Female
  Weight: 56.25 kg

DRUGS (3)
  1. GEODON [Suspect]
     Indication: DEPRESSION
     Dates: start: 20040101, end: 20070201
  2. WELLBUTRIN [Concomitant]
  3. CLONAZEPAM [Concomitant]

REACTIONS (3)
  - ANXIETY [None]
  - DYSTONIA [None]
  - EXCESSIVE EYE BLINKING [None]
